FAERS Safety Report 21710281 (Version 2)
Quarter: 2023Q1

REPORT INFORMATION
  Report Type: Report from Study
  Country: CO (occurrence: CO)
  Receive Date: 20221211
  Receipt Date: 20230329
  Transmission Date: 20230417
  Serious: Yes (Hospitalization, Other)
  Sender: FDA-Public Use
  Company Number: CO-ABBVIE-4231510

PATIENT
  Age: 69 Year
  Sex: Female

DRUGS (2)
  1. HUMIRA [Suspect]
     Active Substance: ADALIMUMAB
     Indication: Rheumatoid arthritis
     Route: 058
     Dates: end: 20230124
  2. HUMIRA [Suspect]
     Active Substance: ADALIMUMAB

REACTIONS (11)
  - Hydrocephalus [Recovering/Resolving]
  - Gait disturbance [Recovering/Resolving]
  - Nervousness [Unknown]
  - Irritability [Unknown]
  - Urinary tract disorder [Recovered/Resolved]
  - Therapeutic response unexpected [Unknown]
  - Fall [Recovering/Resolving]
  - Urinary tract infection [Unknown]
  - Urinary tract disorder [Unknown]
  - Anxiety [Unknown]
  - Medical device implantation [Unknown]

NARRATIVE: CASE EVENT DATE: 20220101
